FAERS Safety Report 23467976 (Version 1)
Quarter: 2024Q1

REPORT INFORMATION
  Report Type: Spontaneous
  Country: AU (occurrence: AU)
  Receive Date: 20240201
  Receipt Date: 20240201
  Transmission Date: 20240410
  Serious: No
  Sender: FDA-Public Use
  Company Number: AU-009507513-2401AUS014831

PATIENT
  Age: 82 Year
  Sex: Female

DRUGS (1)
  1. LAGEVRIO [Suspect]
     Active Substance: MOLNUPIRAVIR
     Dosage: 4 CAPSULES, QD
     Dates: start: 20240122

REACTIONS (1)
  - Inappropriate schedule of product administration [Unknown]
